FAERS Safety Report 6463561-7 (Version None)
Quarter: 2009Q4

REPORT INFORMATION
  Report Type: 
  Country: None (occurrence: None)
  Receive Date: 20091106
  Receipt Date: 20091026
  Transmission Date: 20100525
  Serious: Yes (Other)
  Sender: FDA-Public Use
  Company Number: THYM-1001277

PATIENT
  Age: 43 Year
  Sex: Male
  Weight: 52 kg

DRUGS (2)
  1. THYMOGLOBULIN [Suspect]
     Indication: APLASTIC ANAEMIA
     Dosage: 2.88 MG/KG, QD, INTRAVENOUS
     Route: 042
     Dates: start: 20090915, end: 20090919
  2. CORTICOSTEROIDS () [Suspect]
     Indication: DRUG USE FOR UNKNOWN INDICATION

REACTIONS (1)
  - IMPAIRED INSULIN SECRETION [None]
